FAERS Safety Report 19253201 (Version 2)
Quarter: 2021Q3

REPORT INFORMATION
  Report Type: Spontaneous
  Country: US (occurrence: US)
  Receive Date: 20210513
  Receipt Date: 20210712
  Transmission Date: 20211014
  Serious: Yes (Hospitalization, Other)
  Sender: FDA-Public Use
  Company Number: US-BAYER-2021-138698

PATIENT
  Age: 28 Year
  Sex: Female

DRUGS (1)
  1. ACETYLSALICYLIC ACID [Suspect]
     Active Substance: ASPIRIN
     Dosage: UNK

REACTIONS (7)
  - Cardiac failure [None]
  - Tinnitus [Recovering/Resolving]
  - Abdominal pain [Recovering/Resolving]
  - Ventricular hypokinesia [None]
  - Pulmonary oedema [Recovering/Resolving]
  - Mitochondrial toxicity [Recovering/Resolving]
  - Overdose [None]
